FAERS Safety Report 14103523 (Version 1)
Quarter: 2017Q4

REPORT INFORMATION
  Report Type: Spontaneous
  Country: US (occurrence: US)
  Receive Date: 20171018
  Receipt Date: 20171018
  Transmission Date: 20180321
  Serious: Yes (Other)
  Sender: FDA-Public Use
  Company Number: US-SAGENT PHARMACEUTICALS-2017SAG000459

PATIENT

DRUGS (7)
  1. LEUCOVORIN CALCIUM. [Suspect]
     Active Substance: LEUCOVORIN CALCIUM
     Indication: CHEMOTHERAPY
     Dosage: 2 CYCLES
  2. HYDROCODONE [Suspect]
     Active Substance: HYDROCODONE
  3. CISPLATIN. [Suspect]
     Active Substance: CISPLATIN
  4. METHOTREXATE. [Suspect]
     Active Substance: METHOTREXATE
  5. BACLOFEN. [Suspect]
     Active Substance: BACLOFEN
  6. GABAPENTIN. [Suspect]
     Active Substance: GABAPENTIN
  7. DOXORUBICIN [Suspect]
     Active Substance: DOXORUBICIN

REACTIONS (6)
  - Psychomotor hyperactivity [Recovering/Resolving]
  - Insomnia [Recovering/Resolving]
  - Social (pragmatic) communication disorder [Unknown]
  - Disturbance in attention [Unknown]
  - Irritability [Recovering/Resolving]
  - Phantom pain [Recovering/Resolving]
